FAERS Safety Report 10762790 (Version 2)
Quarter: 2015Q2

REPORT INFORMATION
  Report Type: Spontaneous
  Country: FR (occurrence: FR)
  Receive Date: 20150204
  Receipt Date: 20150522
  Transmission Date: 20150821
  Serious: Yes (Hospitalization, Other)
  Sender: FDA-Public Use
  Company Number: FR-PFIZER INC-2015044072

PATIENT
  Age: 77 Year
  Sex: Female

DRUGS (6)
  1. DIAMICRON [Concomitant]
     Active Substance: GLICLAZIDE
     Dosage: MODIFIED RELEASE
     Dates: start: 20141216
  2. ATENOLOL. [Suspect]
     Active Substance: ATENOLOL
     Indication: PALPITATIONS
     Dosage: UNK
     Route: 048
     Dates: start: 20141124, end: 20141210
  3. VALSARTRAN/HYDROCHLOROTHIAZIDE [Concomitant]
     Dosage: 12.5/160
     Route: 065
     Dates: start: 201202, end: 20141216
  4. FLECAINE [Suspect]
     Active Substance: FLECAINIDE
     Indication: PALPITATIONS
     Dosage: UNK
     Route: 048
     Dates: start: 20141124, end: 20141210
  5. JANUMET [Concomitant]
     Active Substance: METFORMIN HYDROCHLORIDE\SITAGLIPTIN PHOSPHATE
     Dosage: UNK
     Dates: start: 201101, end: 20141216
  6. AMLOR [Concomitant]
     Active Substance: AMLODIPINE BESYLATE
     Dosage: 10 MG, UNK
     Dates: start: 20141216

REACTIONS (2)
  - Dyspnoea [Recovering/Resolving]
  - Interstitial lung disease [Recovering/Resolving]

NARRATIVE: CASE EVENT DATE: 20141201
